FAERS Safety Report 22234154 (Version 1)
Quarter: 2023Q2

REPORT INFORMATION
  Report Type: Spontaneous
  Country: US (occurrence: US)
  Receive Date: 20230420
  Receipt Date: 20230420
  Transmission Date: 20230721
  Serious: No
  Sender: FDA-Public Use
  Company Number: US-APOTEX-2023AP000164

PATIENT
  Sex: Female

DRUGS (6)
  1. KETOROLAC TROMETHAMINE [Suspect]
     Active Substance: KETOROLAC TROMETHAMINE
     Indication: Cataract
     Dosage: 1 GTT DROPS, QID (1 DROP IN LEFT EYE)
     Route: 047
     Dates: start: 20221205
  2. KETOROLAC TROMETHAMINE [Suspect]
     Active Substance: KETOROLAC TROMETHAMINE
     Dosage: 1 GTT DROPS, QID (1 DROP IN LEFT EYE)
     Route: 047
     Dates: start: 20221217
  3. KETOROLAC TROMETHAMINE [Suspect]
     Active Substance: KETOROLAC TROMETHAMINE
     Dosage: 1 GTT DROPS, QID (1 DROP IN RIGHT EYE)
     Route: 047
  4. OFLOXACIN [Concomitant]
     Active Substance: OFLOXACIN
     Indication: Product used for unknown indication
     Dosage: 1 GTT DROPS, QID (1 DROP ON AFFECTED EYE)
     Route: 047
  5. OFLOXACIN [Concomitant]
     Active Substance: OFLOXACIN
     Dosage: 2 GTT DROPS, QID, FIRST 2 WEEK
     Route: 047
  6. PREDNISOLONE [Concomitant]
     Active Substance: PREDNISOLONE
     Indication: Cataract
     Dosage: 1 GTT DROPS, BID (1 DROP ON AFFECTED EYE)
     Route: 065

REACTIONS (7)
  - Product leakage [Unknown]
  - Product packaging difficult to open [Unknown]
  - Product dose omission issue [Unknown]
  - Product design issue [Unknown]
  - Device defective [Unknown]
  - Intentional dose omission [Unknown]
  - No adverse event [Unknown]

NARRATIVE: CASE EVENT DATE: 20221201
